FAERS Safety Report 16932989 (Version 3)
Quarter: 2020Q1

REPORT INFORMATION
  Report Type: Report from Study
  Country: US (occurrence: US)
  Receive Date: 20191018
  Receipt Date: 20200315
  Transmission Date: 20200409
  Serious: Yes (Other)
  Sender: FDA-Public Use
  Company Number: US-BIOGEN-2019BI00796171

PATIENT
  Age: 77 Year
  Sex: Female

DRUGS (3)
  1. TECFIDERA [Suspect]
     Active Substance: DIMETHYL FUMARATE
     Dosage: MAINTENANCE
     Route: 065
     Dates: start: 20191007
  2. TECFIDERA [Suspect]
     Active Substance: DIMETHYL FUMARATE
     Indication: MULTIPLE SCLEROSIS
     Route: 048
     Dates: start: 20190918
  3. TECFIDERA [Suspect]
     Active Substance: DIMETHYL FUMARATE
     Dosage: INITIAL
     Route: 048
     Dates: start: 20190930, end: 20191006

REACTIONS (10)
  - Multiple sclerosis [Not Recovered/Not Resolved]
  - Aphasia [Recovered/Resolved]
  - Fall [Recovered/Resolved]
  - Aneurysm [Unknown]
  - Loss of control of legs [Unknown]
  - Cerebrovascular accident [Unknown]
  - Transient ischaemic attack [Recovered/Resolved]
  - Heart injury [Unknown]
  - Mobility decreased [Unknown]
  - Dizziness postural [Recovered/Resolved]

NARRATIVE: CASE EVENT DATE: 20191201
